FAERS Safety Report 4891845-2 (Version None)
Quarter: 2006Q1

REPORT INFORMATION
  Report Type: 
  Country: None (occurrence: None)
  Receive Date: 20060126
  Receipt Date: 20060120
  Transmission Date: 20060701
  Serious: Yes (Hospitalization)
  Sender: FDA-Public Use
  Company Number: 2006UW01105

PATIENT
  Age: 9 Year
  Sex: Female

DRUGS (4)
  1. SEROQUEL [Suspect]
     Indication: AGGRESSION
     Route: 048
  2. SEROQUEL [Suspect]
     Route: 048
  3. RITALIN [Concomitant]
     Indication: BIPOLAR DISORDER
  4. RITALIN [Concomitant]
     Indication: ATTENTION DEFICIT/HYPERACTIVITY DISORDER

REACTIONS (4)
  - BLOOD CREATINE PHOSPHOKINASE INCREASED [None]
  - DYSKINESIA [None]
  - PHARYNGOLARYNGEAL PAIN [None]
  - PYREXIA [None]
